FAERS Safety Report 4925309-4 (Version None)
Quarter: 2006Q1

REPORT INFORMATION
  Report Type: 
  Country: None (occurrence: None)
  Receive Date: 20060228
  Receipt Date: 20060216
  Transmission Date: 20060701
  Serious: Yes (Hospitalization)
  Sender: FDA-Public Use
  Company Number: FR-GLAXOSMITHKLINE-B0413460A

PATIENT
  Age: 91 Year
  Sex: Female
  Weight: 70 kg

DRUGS (17)
  1. AUGMENTIN [Suspect]
     Dosage: 1UNIT THREE TIMES PER DAY
     Route: 048
     Dates: start: 20060118, end: 20060127
  2. ROCEPHIN [Suspect]
     Dosage: 1G PER DAY
     Route: 042
     Dates: start: 20060112, end: 20060118
  3. FLUCONAZOLE [Suspect]
     Dosage: 150MG PER DAY
     Route: 048
     Dates: start: 20060120, end: 20060120
  4. ALLOPURINOL [Concomitant]
     Route: 048
  5. DEROXAT [Concomitant]
     Route: 065
  6. AUGMENTIN [Concomitant]
     Dosage: 1G SINGLE DOSE
     Route: 065
     Dates: start: 20060111, end: 20060111
  7. TRIATEC [Concomitant]
     Dosage: 2.5MG PER DAY
     Route: 048
  8. OMEPRAZOLE [Concomitant]
     Dosage: 20MG PER DAY
     Route: 048
  9. NOVONORM [Concomitant]
     Route: 065
  10. DIGOXIN [Concomitant]
     Route: 065
  11. LASILIX [Concomitant]
     Route: 065
  12. KALEORID [Concomitant]
     Route: 065
  13. LEVOTHYROX [Concomitant]
     Route: 065
  14. RISPERDAL [Concomitant]
     Route: 065
  15. HYPERIUM [Concomitant]
     Route: 065
     Dates: end: 20060111
  16. GENTAMYCIN SULFATE [Concomitant]
     Route: 065
  17. GYNOPEVARYL [Concomitant]
     Route: 067
     Dates: start: 20060112, end: 20060114

REACTIONS (5)
  - ALANINE AMINOTRANSFERASE INCREASED [None]
  - ASPARTATE AMINOTRANSFERASE INCREASED [None]
  - BLOOD ALKALINE PHOSPHATASE INCREASED [None]
  - CHOLESTASIS [None]
  - GAMMA-GLUTAMYLTRANSFERASE INCREASED [None]
